FAERS Safety Report 7790073-0 (Version None)
Quarter: 2011Q3

REPORT INFORMATION
  Report Type: 
  Country: None (occurrence: None)
  Receive Date: 20110930
  Receipt Date: 20101001
  Transmission Date: 20111222
  Serious: No
  Sender: FDA-Public Use
  Company Number: US-ASTRAZENECA-2010SE43410

PATIENT
  Age: 64 Year
  Sex: Female
  Weight: 69.9 kg

DRUGS (5)
  1. ANTIBIOTIC [Suspect]
  2. SIMVASTATIN [Concomitant]
  3. ARIMIDEX [Suspect]
     Route: 048
     Dates: start: 20100823, end: 20100915
  4. VITAMIN TAB [Concomitant]
  5. ARIMIDEX [Suspect]
     Indication: BREAST CANCER
     Route: 048
     Dates: start: 20100801, end: 20100801

REACTIONS (4)
  - LIP SWELLING [None]
  - EYE SWELLING [None]
  - FACIAL PAIN [None]
  - SWELLING FACE [None]
